FAERS Safety Report 8950577 (Version 1)
Quarter: 2012Q4

REPORT INFORMATION
  Report Type: 
  Country: US (occurrence: US)
  Receive Date: 20121207
  Receipt Date: 20121207
  Transmission Date: 20130627
  Serious: Yes (Hospitalization)
  Sender: FDA-Public Use
  Company Number: US-BAYER-2012-127324

PATIENT
  Age: 25 Year
  Sex: Female
  Weight: 95.24 kg

DRUGS (13)
  1. YAZ [Suspect]
     Indication: PREMENSTRUAL DYSPHORIC DISORDER
     Dosage: UNK
     Dates: start: 20071231, end: 201003
  2. GIANVI [Suspect]
     Indication: PREMENSTRUAL DYSPHORIC DISORDER
     Dosage: UNK
     Dates: start: 20100611, end: 20110318
  3. AZITHROMYCIN [Concomitant]
     Dosage: 250 mg, UNK
     Dates: start: 20110107
  4. ONDANSETRON ODT [Concomitant]
     Dosage: 4 mg, UNK
     Dates: start: 20110114
  5. AMBI 40PSE-400GFN- 20DM TABL [Concomitant]
     Dosage: UNK
     Dates: start: 20110114
  6. TOPIRAMATE [Concomitant]
     Dosage: 25 mg, UNK
     Dates: start: 20110202
  7. TOPIRAMATE [Concomitant]
     Dosage: 25 mg, UNK
     Dates: start: 20110302
  8. OMEPRAZOL [Concomitant]
     Dosage: 20 mg, UNK
     Dates: start: 20110217
  9. PREVACID [Concomitant]
  10. ULTRAM [Concomitant]
     Dosage: 50 mg, UNK
  11. TOPAMAX [Concomitant]
  12. DILAUDID [Concomitant]
     Indication: PAIN
  13. ZOFRAN [Concomitant]
     Indication: NAUSEA

REACTIONS (5)
  - Pulmonary embolism [None]
  - Dyspnoea [None]
  - Chest pain [None]
  - Presyncope [None]
  - Pain in extremity [None]
